FAERS Safety Report 4630541-3 (Version None)
Quarter: 2005Q2

REPORT INFORMATION
  Report Type: 
  Country: None (occurrence: None)
  Receive Date: 20050408
  Receipt Date: 20050120
  Transmission Date: 20051028
  Serious: Yes (Hospitalization)
  Sender: FDA-Public Use
  Company Number: FR-GLAXOSMITHKLINE-B0365253A

PATIENT
  Age: 82 Year
  Sex: Male

DRUGS (10)
  1. AUGMENTIN '125' [Suspect]
     Indication: PYREXIA
     Dosage: 1G THREE TIMES PER DAY
     Route: 048
     Dates: start: 20041217, end: 20041225
  2. PYOSTACINE [Concomitant]
     Dosage: 1UNIT SINGLE DOSE
     Route: 048
     Dates: start: 20041230, end: 20041230
  3. REMINYL [Concomitant]
  4. MONOTILDIEM [Concomitant]
  5. KARDEGIC [Concomitant]
  6. INSULIN [Concomitant]
  7. SERECOR [Concomitant]
  8. LEXOMIL [Concomitant]
  9. TOPALGIC ( FRANCE ) [Concomitant]
  10. PREVISCAN [Concomitant]

REACTIONS (11)
  - ALDOLASE INCREASED [None]
  - DERMATOMYOSITIS [None]
  - FUNGAL SKIN INFECTION [None]
  - HYPERKERATOSIS [None]
  - NAIL DYSTROPHY [None]
  - OEDEMA [None]
  - OEDEMA GENITAL [None]
  - OEDEMA PERIPHERAL [None]
  - PYREXIA [None]
  - RASH PAPULAR [None]
  - VASCULITIS [None]
